FAERS Safety Report 5647939-7 (Version None)
Quarter: 2008Q1

REPORT INFORMATION
  Report Type: 
  Country: None (occurrence: None)
  Receive Date: 20080229
  Receipt Date: 20080225
  Transmission Date: 20080703
  Serious: Yes (Death)
  Sender: FDA-Public Use
  Company Number: MTF20080001

PATIENT
  Age: 53 Year
  Sex: Male

DRUGS (1)
  1. METFORMIN UNKNOWN UNKNOWN [Suspect]
     Dosage: 150 TABS ONCE PO
     Route: 048
     Dates: start: 20060101, end: 20060101

REACTIONS (9)
  - ACIDOSIS [None]
  - AGGRESSION [None]
  - AGITATION [None]
  - ATRIAL FIBRILLATION [None]
  - CONTINUOUS HAEMODIAFILTRATION [None]
  - HYPOTENSION [None]
  - HYPOTHERMIA [None]
  - INCORRECT DOSE ADMINISTERED [None]
  - OLIGURIA [None]
